FAERS Safety Report 6106454-7 (Version None)
Quarter: 2009Q1

REPORT INFORMATION
  Report Type: 
  Country: None (occurrence: None)
  Receive Date: 20090306
  Receipt Date: 20090224
  Transmission Date: 20090719
  Serious: Yes (Hospitalization)
  Sender: FDA-Public Use
  Company Number: JP-ABBOTT-09P-087-0559080-00

PATIENT
  Sex: Female
  Weight: 84 kg

DRUGS (8)
  1. HUMIRA [Suspect]
     Indication: PSORIASIS
     Route: 058
     Dates: start: 20060519, end: 20090206
  2. IMIGRAN [Concomitant]
     Indication: DRUG USE FOR UNKNOWN INDICATION
     Route: 042
     Dates: start: 20090218, end: 20090218
  3. IMIGRAN [Concomitant]
     Route: 048
     Dates: start: 20090219
  4. VOLTAREN [Concomitant]
     Indication: DRUG USE FOR UNKNOWN INDICATION
     Dates: start: 20090218, end: 20090218
  5. ZOMIG [Concomitant]
     Indication: DRUG USE FOR UNKNOWN INDICATION
     Route: 048
     Dates: start: 20090220
  6. CORTICOSTEROIDS [Concomitant]
     Indication: PSORIASIS
  7. VITAMIN D [Concomitant]
     Indication: PSORIASIS
  8. CYCLOSPORINE [Concomitant]
     Indication: PSORIASIS
     Dates: start: 20040418, end: 20050801

REACTIONS (1)
  - CONVULSION [None]
